FAERS Safety Report 15126687 (Version 1)
Quarter: 2018Q3

REPORT INFORMATION
  Report Type: Spontaneous
  Country: BR (occurrence: BR)
  Receive Date: 20180710
  Receipt Date: 20180710
  Transmission Date: 20181010
  Serious: Yes (Other)
  Sender: FDA-Public Use
  Company Number: BR-PFIZER INC-2018272093

PATIENT
  Age: 70 Year
  Sex: Male

DRUGS (1)
  1. XALATAN [Suspect]
     Active Substance: LATANOPROST
     Dosage: UNK
     Route: 047
     Dates: start: 2014

REACTIONS (3)
  - Intentional product misuse [Unknown]
  - Visual impairment [Not Recovered/Not Resolved]
  - Blindness [Not Recovered/Not Resolved]
